FAERS Safety Report 4649235-3 (Version None)
Quarter: 2005Q2

REPORT INFORMATION
  Report Type: 
  Country: None (occurrence: None)
  Receive Date: 20050429
  Receipt Date: 20050418
  Transmission Date: 20051028
  Serious: Yes (Hospitalization)
  Sender: FDA-Public Use
  Company Number: FR-JNJFOC-20050404461

PATIENT
  Sex: Female
  Weight: 48 kg

DRUGS (1)
  1. INFLIXIMAB [Suspect]
     Indication: RHEUMATOID ARTHRITIS
     Dosage: 3 INFUSIONS ADMINISTERED ON 25-JAN-2002, 08-FEB-2002 AND 07-AUG-2002
     Route: 042

REACTIONS (6)
  - BLOOD PRESSURE INCREASED [None]
  - CHEST PAIN [None]
  - HIP ARTHROPLASTY [None]
  - LOSS OF CONSCIOUSNESS [None]
  - MALAISE [None]
  - URTICARIA [None]
